FAERS Safety Report 5447737-3 (Version None)
Quarter: 2007Q3

REPORT INFORMATION
  Report Type: 
  Country: None (occurrence: None)
  Receive Date: 20070910
  Receipt Date: 20070830
  Transmission Date: 20080115
  Serious: Yes (Hospitalization)
  Sender: FDA-Public Use
  Company Number: FR-ELI_LILLY_AND_COMPANY-FR200708006891

PATIENT
  Age: 76 Year
  Sex: Female

DRUGS (2)
  1. FORTEO [Suspect]
     Indication: OSTEOPOROSIS
     Dosage: 20 UG, DAILY (1/D)
     Route: 058
     Dates: start: 20070712
  2. HEPARIN-FRACTION [Concomitant]
     Indication: THROMBOSIS PROPHYLAXIS
     Dosage: UNK, DAILY (1/D)
     Route: 058

REACTIONS (2)
  - FALL [None]
  - FEMORAL NECK FRACTURE [None]
